FAERS Safety Report 15559037 (Version 1)
Quarter: 2018Q4

REPORT INFORMATION
  Report Type: Spontaneous
  Country: GB (occurrence: GB)
  Receive Date: 20181029
  Receipt Date: 20181029
  Transmission Date: 20190205
  Serious: Yes (Other)
  Sender: FDA-Public Use
  Company Number: GB-ACCORD-073922

PATIENT
  Age: 86 Year
  Sex: Male

DRUGS (16)
  1. BECLOMETASONE [Concomitant]
     Active Substance: BECLOMETHASONE DIPROPIONATE
  2. PARACETAMOL [Concomitant]
     Active Substance: ACETAMINOPHEN
  3. CITALOPRAM [Concomitant]
     Active Substance: CITALOPRAM HYDROBROMIDE
  4. BISACODYL. [Concomitant]
     Active Substance: BISACODYL
  5. OMEPRAZOLE. [Concomitant]
     Active Substance: OMEPRAZOLE
  6. NOVORAPID [Concomitant]
     Active Substance: INSULIN ASPART
  7. CODEINE [Concomitant]
     Active Substance: CODEINE
  8. ACCRETE D3 [Concomitant]
  9. TIMOLOL MALEATE/BIMATOPROST [Concomitant]
  10. LEVOTHYROXINE. [Concomitant]
     Active Substance: LEVOTHYROXINE
  11. ARIPIPRAZOLE. [Suspect]
     Active Substance: ARIPIPRAZOLE
     Indication: ALCOHOLIC PSYCHOSIS
     Route: 048
  12. CLOPIDOGREL [Concomitant]
     Active Substance: CLOPIDOGREL BISULFATE
  13. ATORVASTATIN [Concomitant]
     Active Substance: ATORVASTATIN
  14. LORAZEPAM. [Concomitant]
     Active Substance: LORAZEPAM
  15. DORZOLAMIDE [Concomitant]
     Active Substance: DORZOLAMIDE
  16. PROPRANOLOL [Concomitant]
     Active Substance: PROPRANOLOL HYDROCHLORIDE

REACTIONS (1)
  - Pancytopenia [Recovering/Resolving]

NARRATIVE: CASE EVENT DATE: 20171207
